FAERS Safety Report 20983046 (Version 1)
Quarter: 2022Q2

REPORT INFORMATION
  Report Type: Spontaneous
  Country: RO (occurrence: RO)
  Receive Date: 20220620
  Receipt Date: 20220620
  Transmission Date: 20220720
  Serious: Yes (Death, Life-Threatening, Hospitalization, Other)
  Sender: FDA-Public Use
  Company Number: RO-BAXTER-2022BAX010357

PATIENT
  Age: 66 Year
  Sex: Female
  Weight: 78 kg

DRUGS (23)
  1. DOXORUBICIN [Suspect]
     Active Substance: DOXORUBICIN
     Indication: B precursor type acute leukaemia
     Dosage: VIALS OF 50 MG, 80 MG I.V. IN 16.01.2017.; CYCLICAL (80 MG,2 CYCLICAL)
     Route: 042
     Dates: start: 20170116
  2. CYCLOPHOSPHAMIDE [Suspect]
     Active Substance: CYCLOPHOSPHAMIDE
     Indication: B precursor type acute leukaemia
     Dosage: VIALS OF 200 MG, 340 MG/DOSE, 2 DOSES/DAY, I.V., AT 12 HOURS INTERVALBETWEEN 13 AND 15.01.2017 (680
     Route: 042
     Dates: start: 20170113, end: 20170115
  3. METHYLPREDNISOLONE [Suspect]
     Active Substance: METHYLPREDNISOLONE
     Dosage: VIALS OF 500 MG, 50 MG AT 12 HOURS INTERVAL, I.V., 6 DOSES, BETWEEN 3 AND 5.02.2017 (50 MG,12 HR)
     Route: 042
     Dates: start: 20170203, end: 20170205
  4. CYTARABINE [Suspect]
     Active Substance: CYTARABINE
     Indication: B precursor type acute leukaemia
     Dosage: VIALS OF 2 G, 2X2 GRAMS/DAY, IN I.V., PERFUSIONS OF 2 HOURS, AT 12 HOURS INTERVAL, IN 4 AND IN 5. (4
     Route: 042
     Dates: start: 20170204, end: 20170205
  5. CYTARABINE [Suspect]
     Active Substance: CYTARABINE
     Dosage: VIALS OF 1 G, 25 MG I.T. ON 30.01.2017; CYCLICAL (25 MG,2 CYCLICAL)
     Route: 037
     Dates: start: 20170130
  6. DEXAMETHASONE [Suspect]
     Active Substance: DEXAMETHASONE
     Indication: B precursor type acute leukaemia
     Dosage: ONE DROP PER HOUR IN THE CONJUNCTIVAL SAC, BETWEEN 4 AND 7.0-2.2017 (1 GTT,1 HR)
     Route: 031
     Dates: start: 20170204, end: 20170207
  7. DEXAMETHASONE [Suspect]
     Active Substance: DEXAMETHASONE
     Dosage: 5 VIALS/DAY, I.V., BETWEEN 13 AND 16.01.2017 AND BETWEEN 23 AND 26.01.2017;
     Route: 042
     Dates: start: 20170123, end: 20170126
  8. DEXAMETHASONE [Suspect]
     Active Substance: DEXAMETHASONE
     Dosage: 5 VIALS/DAY, I.V., BETWEEN 13 AND 16.01.2017 AND BETWEEN 23 AND 26.01.2017;  CYCLICAL (5 DOSAGE FORM
     Route: 042
     Dates: start: 20170113, end: 20170116
  9. METHOTREXATE [Suspect]
     Active Substance: METHOTREXATE
     Indication: B precursor type acute leukaemia
     Dosage: 1375 MG, 2 CYCLICAL
     Route: 042
     Dates: start: 20170203, end: 20170203
  10. METHOTREXATE [Suspect]
     Active Substance: METHOTREXATE
     Dosage: VIALS OF 5 G, 345 MG, I.V. DURING 2 HOURS, IN 3.02.2017 (345 MG)
     Route: 042
     Dates: start: 20170203, end: 20170203
  11. METHOTREXATE [Suspect]
     Active Substance: METHOTREXATE
     Dosage: VIALS OF 5 G, 15 MG, I.T., IN 30.01.2017; CYCLICAL (15 MG,2 CYCLICAL)
     Route: 037
     Dates: start: 20170130, end: 20170130
  12. VINCRISTINE [Suspect]
     Active Substance: VINCRISTINE
     Indication: B precursor type acute leukaemia
     Dosage: CYCLICAL (2 DOSAGE FORMS,2 CYCLICAL)
     Route: 042
     Dates: start: 201701, end: 20170123
  13. VINCRISTINE [Suspect]
     Active Substance: VINCRISTINE
     Dosage: (2 DOSAGE FORMS,2 CYCLICAL)
     Route: 042
     Dates: start: 20170115, end: 201701
  14. AMPICILLIN [Suspect]
     Active Substance: AMPICILLIN
     Indication: Urinary tract infection enterococcal
     Dosage: VIALS OF 1 G AT A DOSING OF 2X2 G/DAY, I.V., BETWEEN 3 AND 11.02.2017 (2 DOSAGE FORMS,24 HR)
     Route: 042
     Dates: start: 20170203, end: 20170211
  15. AMPICILLIN [Suspect]
     Active Substance: AMPICILLIN
     Indication: Enterococcal infection
  16. MEROPENEM [Suspect]
     Active Substance: MEROPENEM
     Indication: Urinary tract infection enterococcal
     Dosage: VIALS OF 1 G, AT A DOSING OF 3 X1G/DAY, I.V., ON 12.02.2017 (THEN IT LEFT IN THE HOSPITAL PHARMACY).
     Route: 042
     Dates: start: 20170212
  17. MEROPENEM [Suspect]
     Active Substance: MEROPENEM
     Indication: Enterococcal infection
  18. RIFAXIMIN [Suspect]
     Active Substance: RIFAXIMIN
     Dosage: 3X2 TABLETS/DAY, ORALLY, BETWEEN 3 AND 26.02.2017 (3 DOSAGE FORMS,12 HR)
     Route: 048
     Dates: start: 20170203, end: 20170226
  19. SULFAMETHOXAZOLE\TRIMETHOPRIM [Suspect]
     Active Substance: SULFAMETHOXAZOLE\TRIMETHOPRIM
     Dosage: 2X2 TABLETS/DAY, ORALLY, ON 5, 7, 9, 11, 13.02.2017 (4 DOSAGE FORMS,2 D)
     Route: 048
     Dates: start: 20170205, end: 20170213
  20. IMIPENEM [Suspect]
     Active Substance: IMIPENEM
     Indication: Enterococcal infection
     Dosage: VIALS OF 0.5 G, AT A DOSING OF 4X1 VIALS/DAY, I.V., BETWEEN 13 AND 26.02.2017. (1 DOSAGE FORMS,6 HR)
     Route: 042
     Dates: start: 20170213, end: 20170226
  21. IMIPENEM [Suspect]
     Active Substance: IMIPENEM
     Indication: Urinary tract infection
  22. LINEZOLID [Suspect]
     Active Substance: LINEZOLID
     Indication: Urinary tract infection
     Dosage: VIALS OF 600 MG AT A DOSING OF 2X1 VIALS/DAY, I.V., BETWEEN 12.02 AND  26.02.2017 (1 DOSAGE FORMS,12
     Route: 042
     Dates: start: 20170212, end: 20170226
  23. LINEZOLID [Suspect]
     Active Substance: LINEZOLID
     Indication: Enterococcal infection

REACTIONS (5)
  - Acute hepatic failure [Fatal]
  - Hepatic infarction [Not Recovered/Not Resolved]
  - Aplasia [Recovering/Resolving]
  - Hepatotoxicity [Not Recovered/Not Resolved]
  - Clostridium difficile colitis [Recovered/Resolved]

NARRATIVE: CASE EVENT DATE: 20170101
